FAERS Safety Report 13840538 (Version 2)
Quarter: 2017Q3

REPORT INFORMATION
  Report Type: Spontaneous
  Country: FR (occurrence: FR)
  Receive Date: 20170807
  Receipt Date: 20170809
  Transmission Date: 20171127
  Serious: Yes (Other)
  Sender: FDA-Public Use
  Company Number: FR-TEVA-792832ROM

PATIENT
  Age: 24 Year
  Sex: Female

DRUGS (1)
  1. COPAXONE [Suspect]
     Active Substance: GLATIRAMER ACETATE
     Indication: PRODUCT USED FOR UNKNOWN INDICATION
     Route: 058
     Dates: start: 20170707

REACTIONS (6)
  - Injection site induration [Unknown]
  - Nausea [Unknown]
  - Feeling hot [Unknown]
  - Injection site pain [Unknown]
  - Vomiting [Unknown]
  - Injection site plaque [Unknown]

NARRATIVE: CASE EVENT DATE: 20170707
